FAERS Safety Report 5422506-9 (Version None)
Quarter: 2007Q3

REPORT INFORMATION
  Report Type: 
  Country: None (occurrence: None)
  Receive Date: 20070822
  Receipt Date: 20070814
  Transmission Date: 20080115
  Serious: Yes (Other)
  Sender: FDA-Public Use
  Company Number: B0484115A

PATIENT
  Age: 30 Year
  Sex: Female
  Weight: 51 kg

DRUGS (1)
  1. NIQUITIN 21MG [Suspect]
     Route: 062
     Dates: start: 20070813, end: 20070813

REACTIONS (5)
  - ASTHENIA [None]
  - FEELING HOT [None]
  - HEADACHE [None]
  - SYNCOPE [None]
  - VOMITING [None]
